FAERS Safety Report 9395490 (Version 1)
Quarter: 2013Q3

REPORT INFORMATION
  Report Type: Spontaneous
  Country: GR (occurrence: GR)
  Receive Date: 20130711
  Receipt Date: 20130711
  Transmission Date: 20140515
  Serious: Yes (Death, Other)
  Sender: FDA-Public Use
  Company Number: GR-ELI_LILLY_AND_COMPANY-GR201307000867

PATIENT
  Age: 27 Year
  Sex: Female

DRUGS (1)
  1. ZYPADHERA [Suspect]
     Indication: SCHIZOPHRENIA
     Dosage: 405 MG, MONTHLY (1/M)
     Route: 030
     Dates: end: 201306

REACTIONS (2)
  - Completed suicide [Fatal]
  - Suicidal ideation [Unknown]
